FAERS Safety Report 10538245 (Version 3)
Quarter: 2014Q4

REPORT INFORMATION
  Report Type: Spontaneous
  Country: BE (occurrence: BE)
  Receive Date: 20141023
  Receipt Date: 20141211
  Transmission Date: 20150529
  Serious: Yes (Death, Life-Threatening, Hospitalization, Disabling, Other)
  Sender: FDA-Public Use
  Company Number: BE-009507513-1410BEL010330

PATIENT
  Age: 36 Year
  Sex: Female

DRUGS (1)
  1. IMPLANON [Suspect]
     Active Substance: ETONOGESTREL
     Indication: CONTRACEPTION
     Dosage: 1 UNK, UNK
     Route: 059
     Dates: start: 20140613

REACTIONS (7)
  - Acute pulmonary oedema [Fatal]
  - Pulmonary infarction [Fatal]
  - Pulmonary embolism [Fatal]
  - Loss of consciousness [Fatal]
  - Sudden death [Fatal]
  - Pulse absent [Fatal]
  - Medical device complication [Unknown]

NARRATIVE: CASE EVENT DATE: 2014
